FAERS Safety Report 4975618-8 (Version None)
Quarter: 2006Q1

REPORT INFORMATION
  Report Type: 
  Country: None (occurrence: None)
  Receive Date: 20060222
  Receipt Date: 20050613
  Transmission Date: 20060701
  Serious: Yes (Other)
  Sender: FDA-Public Use
  Company Number: HQWYE818118OCT04

PATIENT
  Age: 55 Year
  Sex: Female
  Weight: 68.1 kg

DRUGS (1)
  1. PROTONIX [Suspect]
     Dosage: 1 DOSAGE FORM 1X PER 1 DAY, ORAL
     Route: 048
     Dates: start: 20040101, end: 20040101

REACTIONS (1)
  - GALLBLADDER PAIN [None]
